FAERS Safety Report 24610607 (Version 1)
Quarter: 2024Q4

REPORT INFORMATION
  Report Type: Spontaneous
  Country: US (occurrence: US)
  Receive Date: 20241112
  Receipt Date: 20241112
  Transmission Date: 20250114
  Serious: Yes (Other)
  Sender: MALLINCKRODT
  Company Number: US-MALLINCKRODT-MNK202406669

PATIENT
  Sex: Female

DRUGS (3)
  1. CORTICOTROPIN [Suspect]
     Active Substance: CORTICOTROPIN
     Indication: Multiple sclerosis
     Dosage: 80 UNITS
     Route: 058
     Dates: start: 201910
  2. MAYZENT [Concomitant]
     Active Substance: SIPONIMOD
     Dosage: UNKNOWN
  3. VUMERITY [Concomitant]
     Active Substance: DIROXIMEL FUMARATE
     Dosage: UNKNOWN

REACTIONS (1)
  - Multiple sclerosis relapse [Unknown]
